FAERS Safety Report 22345852 (Version 1)
Quarter: 2023Q2

REPORT INFORMATION
  Report Type: Spontaneous
  Country: US (occurrence: None)
  Receive Date: 20230519
  Receipt Date: 20230519
  Transmission Date: 20230721
  Serious: No
  Sender: FDA-Public Use
  Company Number: None

PATIENT
  Age: 51 Year
  Sex: Female

DRUGS (7)
  1. NALTREXONE HYDROCHLORIDE [Suspect]
     Active Substance: NALTREXONE HYDROCHLORIDE
     Indication: Decreased appetite
     Dosage: OTHER QUANTITY : 1 CAPSULE(S);?FREQUENCY : DAILY;?
     Route: 048
     Dates: start: 20230518, end: 20230519
  2. HYDROXYCHLOROQUINE SULFATE [Concomitant]
     Active Substance: HYDROXYCHLOROQUINE SULFATE
  3. LEVOTHYROXINE [Concomitant]
     Active Substance: LEVOTHYROXINE
  4. RESTASIS [Concomitant]
     Active Substance: CYCLOSPORINE
  5. VITAMIN D NOS [Concomitant]
     Active Substance: VITAMIN D NOS
  6. C [Concomitant]
  7. OMEGA 3 [Concomitant]
     Active Substance: CAPSAICIN

REACTIONS (6)
  - Feeling of relaxation [None]
  - Euphoric mood [None]
  - Nausea [None]
  - Sedation [None]
  - Miosis [None]
  - Paraesthesia [None]

NARRATIVE: CASE EVENT DATE: 20230518
